FAERS Safety Report 7593434-8 (Version None)
Quarter: 2011Q3

REPORT INFORMATION
  Report Type: 
  Country: None (occurrence: None)
  Receive Date: 20110706
  Receipt Date: 20110627
  Transmission Date: 20111222
  Serious: Yes (Hospitalization, Disabling, Other)
  Sender: FDA-Public Use
  Company Number: US-MERCK-1008USA00397

PATIENT
  Age: 54 Year
  Sex: Female

DRUGS (6)
  1. FOSAMAX [Suspect]
     Route: 048
     Dates: start: 20000305, end: 20030101
  2. FOSAMAX [Suspect]
     Route: 048
     Dates: start: 20000329, end: 20000901
  3. FOSAMAX [Suspect]
     Indication: OSTEOPOROSIS
     Route: 065
     Dates: start: 19970611, end: 20000328
  4. ACTONEL [Suspect]
     Indication: OSTEOPOROSIS
     Route: 065
     Dates: start: 20050128
  5. PREDNISONE [Suspect]
     Route: 065
  6. FOSAMAX [Suspect]
     Route: 048
     Dates: end: 20060101

REACTIONS (90)
  - OSTEONECROSIS OF JAW [None]
  - ABSCESS [None]
  - SKIN CANCER [None]
  - DIVERTICULUM [None]
  - ANAEMIA [None]
  - CHRONIC SINUSITIS [None]
  - INCORRECT DOSE ADMINISTERED [None]
  - PNEUMONIA CHLAMYDIAL [None]
  - AORTIC ARTERIOSCLEROSIS [None]
  - DIVERTICULITIS [None]
  - RESTLESS LEGS SYNDROME [None]
  - JAW DISORDER [None]
  - ABDOMINAL WALL ABSCESS [None]
  - CHRONIC OBSTRUCTIVE PULMONARY DISEASE [None]
  - CHEST DISCOMFORT [None]
  - MEMORY IMPAIRMENT [None]
  - PULMONARY FIBROSIS [None]
  - KYPHOSIS [None]
  - INCISION SITE CELLULITIS [None]
  - BURSITIS [None]
  - TOOTH FRACTURE [None]
  - TOOTH DISORDER [None]
  - HERPES ZOSTER [None]
  - PERICARDIAL EFFUSION [None]
  - GINGIVITIS [None]
  - FOOT FRACTURE [None]
  - FISTULA DISCHARGE [None]
  - ANXIETY [None]
  - DIVERTICULUM INTESTINAL [None]
  - VOMITING [None]
  - PULMONARY HYPERTENSION [None]
  - ORAL INFECTION [None]
  - HYPOKALAEMIA [None]
  - HAEMANGIOMA OF LIVER [None]
  - GINGIVAL DISORDER [None]
  - ENTEROCUTANEOUS FISTULA [None]
  - CHOLELITHIASIS [None]
  - HIATUS HERNIA [None]
  - TOOTH INFECTION [None]
  - LARGE INTESTINE PERFORATION [None]
  - COUGH [None]
  - ABDOMINAL DISCOMFORT [None]
  - UTERINE LEIOMYOMA [None]
  - CATARACT [None]
  - RASH [None]
  - OSTEOPENIA [None]
  - DYSPEPSIA [None]
  - GASTROINTESTINAL DISORDER [None]
  - FRACTURE [None]
  - ATELECTASIS [None]
  - ADVERSE DRUG REACTION [None]
  - ASTHMA [None]
  - OSTEONECROSIS [None]
  - SINUSITIS [None]
  - IVTH NERVE PARALYSIS [None]
  - CHLAMYDIA TEST POSITIVE [None]
  - DIARRHOEA [None]
  - DEPRESSION [None]
  - PRESYNCOPE [None]
  - THORACIC VERTEBRAL FRACTURE [None]
  - SKIN LESION [None]
  - RESPIRATORY DISORDER [None]
  - EDENTULOUS [None]
  - BRONCHITIS [None]
  - CONVULSION [None]
  - PNEUMONIA [None]
  - CARDIOMEGALY [None]
  - DIABETES MELLITUS [None]
  - TACHYCARDIA [None]
  - VIRAL UPPER RESPIRATORY TRACT INFECTION [None]
  - PAIN [None]
  - GASTROOESOPHAGEAL REFLUX DISEASE [None]
  - FALL [None]
  - BONE LOSS [None]
  - SEPSIS [None]
  - HYPERCHOLESTEROLAEMIA [None]
  - SLEEP DISORDER [None]
  - FISTULA [None]
  - IATROGENIC INJURY [None]
  - TREATMENT NONCOMPLIANCE [None]
  - PLEURAL EFFUSION [None]
  - TREATMENT FAILURE [None]
  - SLEEP APNOEA SYNDROME [None]
  - ADRENAL INSUFFICIENCY [None]
  - CLUMSINESS [None]
  - NAUSEA [None]
  - VISUAL IMPAIRMENT [None]
  - SOFT TISSUE DISORDER [None]
  - ORAL CANDIDIASIS [None]
  - HYPERLIPIDAEMIA [None]
